FAERS Safety Report 15213443 (Version 2)
Quarter: 2018Q3

REPORT INFORMATION
  Report Type: Report from Study
  Country: JP (occurrence: JP)
  Receive Date: 20180730
  Receipt Date: 20180918
  Transmission Date: 20181010
  Serious: Yes (Other)
  Sender: FDA-Public Use
  Company Number: JP-CELLTRION INC.-2017JP013952

PATIENT

DRUGS (18)
  1. METHOTREXATE. [Suspect]
     Active Substance: METHOTREXATE
     Indication: RHEUMATOID ARTHRITIS
     Dosage: 14 MG/WEEK
  2. CARERAM [Concomitant]
     Active Substance: IGURATIMOD
     Indication: RHEUMATOID ARTHRITIS
     Dosage: 50 MG/DAY
     Dates: start: 201504
  3. CELECOX [Concomitant]
     Active Substance: CELECOXIB
     Indication: RHEUMATOID ARTHRITIS
     Dosage: 400 MG/DAY
     Dates: end: 20170516
  4. GASTROM [Concomitant]
     Active Substance: ECABET SODIUM
     Indication: PROPHYLAXIS
     Dosage: 3 G/DAY
     Dates: end: 20170516
  5. PRALIA [Concomitant]
     Active Substance: DENOSUMAB
     Indication: RHEUMATOID ARTHRITIS
     Dosage: 60 MG/6 MONTHS
     Dates: start: 20170711
  6. METHOTREXATE. [Suspect]
     Active Substance: METHOTREXATE
     Dosage: 12 MG, 1/WEEK
     Dates: start: 20180313
  7. INFLIXIMAB BS FOR I.V. INFUSION100 MG [NK] [Suspect]
     Active Substance: INFLIXIMAB
     Dosage: 200 MG/BODY/DAY
     Route: 042
     Dates: start: 20171107, end: 20171107
  8. INFLIXIMAB BS FOR I.V. INFUSION100 MG [NK] [Suspect]
     Active Substance: INFLIXIMAB
     Dosage: 200 MG/BODY/DAY
     Route: 042
     Dates: start: 20180508, end: 20180508
  9. INFLIXIMAB BS FOR I.V. INFUSION100 MG [NK] [Suspect]
     Active Substance: INFLIXIMAB
     Dosage: 200 MG/BODY/DAY
     Route: 042
     Dates: start: 20180313, end: 20180313
  10. FOLIAMIN [Concomitant]
     Active Substance: FOLIC ACID
     Indication: PROPHYLAXIS
     Dosage: 5 MG/DAY
  11. RECALBON                           /00454801/ [Concomitant]
     Active Substance: ALFACALCIDOL
     Indication: PROPHYLAXIS
     Dosage: 50 MG/MONTH
     Dates: end: 20170711
  12. EDIROL [Concomitant]
     Active Substance: ELDECALCITOL
     Indication: PROPHYLAXIS
     Dosage: 0.75 ?G/DAY
     Dates: start: 20170711
  13. INFLIXIMAB BS FOR I.V. INFUSION100 MG [NK] [Suspect]
     Active Substance: INFLIXIMAB
     Dosage: 200 MG/BODY/DAY
     Route: 042
     Dates: start: 20180109, end: 20180109
  14. INFLIXIMAB BS FOR I.V. INFUSION100 MG [NK] [Suspect]
     Active Substance: INFLIXIMAB
     Dosage: 200 MG/BODY/DAY
     Route: 042
     Dates: start: 20180703, end: 20180703
  15. INFLIXIMAB BS FOR I.V. INFUSION100 MG [NK] [Suspect]
     Active Substance: INFLIXIMAB
     Indication: RHEUMATOID ARTHRITIS
     Dosage: 200 MG/BODY/DAY
     Route: 042
     Dates: start: 20170516, end: 20170516
  16. INFLIXIMAB BS FOR I.V. INFUSION100 MG [NK] [Suspect]
     Active Substance: INFLIXIMAB
     Dosage: 200 MG/BODY/DAY
     Route: 042
     Dates: start: 20170905, end: 20170905
  17. INFLIXIMAB BS FOR I.V. INFUSION100 MG [NK] [Suspect]
     Active Substance: INFLIXIMAB
     Dosage: 200 MG/BODY/DAY
     Route: 042
     Dates: start: 20170711, end: 20170711
  18. MEDROL [Concomitant]
     Active Substance: METHYLPREDNISOLONE
     Indication: RHEUMATOID ARTHRITIS
     Dosage: 2 MG/DAY
     Dates: start: 20161221, end: 20170711

REACTIONS (5)
  - C-reactive protein increased [Recovered/Resolved]
  - Bronchiectasis [Unknown]
  - Anaemia [Recovered/Resolved]
  - Inappropriate schedule of drug administration [Unknown]
  - Hepatic function abnormal [Recovered/Resolved]

NARRATIVE: CASE EVENT DATE: 20171107
